FAERS Safety Report 24024120 (Version 1)
Quarter: 2024Q2

REPORT INFORMATION
  Report Type: Report from Study
  Country: RO (occurrence: RO)
  Receive Date: 20240627
  Receipt Date: 20240627
  Transmission Date: 20240716
  Serious: No
  Sender: FDA-Public Use
  Company Number: RO-ROCHE-3512503

PATIENT
  Age: 73 Year
  Sex: Female
  Weight: 84.0 kg

DRUGS (1)
  1. PHESGO [Suspect]
     Active Substance: HYALURONIDASE-ZZXF\PERTUZUMAB\TRASTUZUMAB
     Indication: Breast cancer
     Dosage: 600MG/600MG
     Route: 065

REACTIONS (5)
  - Gastritis [Unknown]
  - Cardiac dysfunction [Unknown]
  - Lung disorder [Unknown]
  - Gastrointestinal disorder [Unknown]
  - Ulcer [Unknown]
